FAERS Safety Report 7771847-9 (Version None)
Quarter: 2011Q3

REPORT INFORMATION
  Report Type: 
  Country: None (occurrence: None)
  Receive Date: 20110922
  Receipt Date: 20110209
  Transmission Date: 20111222
  Serious: Yes (Other)
  Sender: FDA-Public Use
  Company Number: US-ASTRAZENECA-2007UW05842

PATIENT
  Age: 691 Month
  Sex: Male
  Weight: 104.8 kg

DRUGS (13)
  1. PAZIL [Concomitant]
  2. LEXAPRO [Concomitant]
  3. CERTRALIEN [Concomitant]
  4. SEROQUEL [Suspect]
     Indication: PARANOIA
     Route: 048
     Dates: start: 20050901, end: 20060207
  5. ZYPREXA [Concomitant]
  6. PROZAC [Concomitant]
  7. WELLBUTRIN [Concomitant]
  8. NAVANE [Concomitant]
  9. DEPAKOTE [Concomitant]
     Dates: start: 19930101, end: 19960101
  10. SEROQUEL [Suspect]
     Indication: DEPRESSION
     Route: 048
     Dates: start: 20050901, end: 20060207
  11. TRAZODONE HYDROCHLORIDE [Concomitant]
  12. HALDOL [Concomitant]
  13. RISPERDAL [Concomitant]

REACTIONS (5)
  - TYPE 2 DIABETES MELLITUS [None]
  - OBESITY [None]
  - BLOOD CHOLESTEROL INCREASED [None]
  - CARDIAC DISORDER [None]
  - HYPERLIPIDAEMIA [None]
